FAERS Safety Report 21839113 (Version 2)
Quarter: 2023Q1

REPORT INFORMATION
  Report Type: Report from Study
  Country: BR (occurrence: BR)
  Receive Date: 20230109
  Receipt Date: 20230310
  Transmission Date: 20230417
  Serious: Yes (Hospitalization)
  Sender: FDA-Public Use
  Company Number: BR-Merck Healthcare KGaA-9375455

PATIENT
  Age: 60 Year
  Sex: Female

DRUGS (2)
  1. CETUXIMAB [Suspect]
     Active Substance: CETUXIMAB
     Indication: Rectal cancer metastatic
     Dosage: UNK UNK, 2/M (ONCE IN FIFTEEN DAYS)
     Route: 065
     Dates: start: 20211213
  2. NPH INSULIN [Concomitant]
     Active Substance: INSULIN BEEF
     Indication: Type 2 diabetes mellitus
     Dosage: UNK

REACTIONS (3)
  - Sepsis [Recovered/Resolved]
  - Blood electrolytes decreased [Recovered/Resolved]
  - Off label use [Unknown]
